FAERS Safety Report 9404571 (Version 2)
Quarter: 2013Q3

REPORT INFORMATION
  Report Type: Spontaneous
  Country: US (occurrence: None)
  Receive Date: 20130715
  Receipt Date: 20130801
  Transmission Date: 20140515
  Serious: Yes (Hospitalization)
  Sender: FDA-Public Use
  Company Number: US-012234

PATIENT
  Age: 76 Year
  Sex: Female
  Weight: 55.34 kg

DRUGS (3)
  1. PICO-SALAX [Suspect]
     Indication: BOWEL PREPARATION
     Route: 048
     Dates: start: 20130624, end: 20130624
  2. SIMVASTATIN [Concomitant]
  3. AMITRIPTYLINE [Concomitant]

REACTIONS (3)
  - Diarrhoea [None]
  - Vomiting [None]
  - Chest pain [None]
